FAERS Safety Report 23087173 (Version 1)
Quarter: 2023Q4

REPORT INFORMATION
  Report Type: Spontaneous
  Country: US (occurrence: US)
  Receive Date: 20231020
  Receipt Date: 20231020
  Transmission Date: 20240110
  Serious: No
  Sender: FDA-Public Use
  Company Number: US-drreddys-SPO/USA/23/0179019

PATIENT
  Age: 17 Year

DRUGS (2)
  1. ZENATANE [Suspect]
     Active Substance: ISOTRETINOIN
     Indication: Product used for unknown indication
     Dosage: RMA ISSUE DATE: 29 MARCH 2023 02:57:40 PM, 27 APRIL 2023 12:10:32 PM, 14 AUGUST 2023 12:31:17 PM
  2. ZENATANE [Suspect]
     Active Substance: ISOTRETINOIN
     Dosage: RMA ISSUE DATE: 02 JUNE 2023 02:55:00 PM, 03 JULY 2023 10:15:00 AM

REACTIONS (1)
  - Testicular pain [Unknown]
